FAERS Safety Report 5138276-8 (Version None)
Quarter: 2006Q4

REPORT INFORMATION
  Report Type: 
  Country: None (occurrence: None)
  Receive Date: 20061030
  Receipt Date: 20060811
  Transmission Date: 20070319
  Serious: No
  Sender: FDA-Public Use
  Company Number: US-GLAXOSMITHKLINE-A0616327A

PATIENT
  Age: 83 Year
  Sex: Female

DRUGS (4)
  1. ADVAIR HFA [Suspect]
     Dosage: 1PUFF TWICE PER DAY
     Route: 055
  2. SPIRIVA [Concomitant]
  3. NEBULIZER [Concomitant]
  4. MUCINEX [Concomitant]

REACTIONS (2)
  - BRONCHITIS [None]
  - DYSPHONIA [None]
